FAERS Safety Report 6579875-6 (Version None)
Quarter: 2010Q1

REPORT INFORMATION
  Report Type: 
  Country: None (occurrence: None)
  Receive Date: 20100209
  Receipt Date: 20100209
  Transmission Date: 20100710
  Serious: Yes (Life-Threatening, Hospitalization, Disabling)
  Sender: FDA-Public Use
  Company Number: None

PATIENT
  Age: 39 Year
  Sex: Female
  Weight: 140 kg

DRUGS (2)
  1. OCELLA 3MG/0.03MG BARR LABORATORIES [Suspect]
     Indication: MENSTRUATION IRREGULAR
     Dosage: 1 TABLET DAILY PO
     Route: 048
     Dates: start: 20090621, end: 20091123
  2. OCELLA 3MG/0.03MG BARR LABORATORIES [Suspect]
     Indication: METRORRHAGIA
     Dosage: 1 TABLET DAILY PO
     Route: 048
     Dates: start: 20090621, end: 20091123

REACTIONS (6)
  - ARTERIAL INJURY [None]
  - CARDIOMEGALY [None]
  - CHEST PAIN [None]
  - DEEP VEIN THROMBOSIS [None]
  - PERIPHERAL VASCULAR DISORDER [None]
  - PULMONARY EMBOLISM [None]
